FAERS Safety Report 7905584-4 (Version None)
Quarter: 2011Q4

REPORT INFORMATION
  Report Type: 
  Country: None (occurrence: None)
  Receive Date: 20111110
  Receipt Date: 20111101
  Transmission Date: 20120403
  Serious: No
  Sender: FDA-Public Use
  Company Number: US-BIOGENIDEC-2011BI041914

PATIENT
  Age: 17 Year
  Sex: Female

DRUGS (2)
  1. TRILEPTAL [Concomitant]
     Indication: PETIT MAL EPILEPSY
  2. TYSABRI [Suspect]
     Indication: MULTIPLE SCLEROSIS
     Route: 042
     Dates: start: 20101014

REACTIONS (4)
  - ANGER [None]
  - AFFECT LABILITY [None]
  - DRUG EFFECT DECREASED [None]
  - MULTIPLE SCLEROSIS [None]
